FAERS Safety Report 23013947 (Version 1)
Quarter: 2023Q4

REPORT INFORMATION
  Report Type: Spontaneous
  Country: US (occurrence: US)
  Receive Date: 20231001
  Receipt Date: 20231001
  Transmission Date: 20240110
  Serious: No
  Sender: FDA-Public Use
  Company Number: US-drreddys-SPO/USA/23/0176154

PATIENT
  Age: 3 Decade
  Sex: Male

DRUGS (5)
  1. ISOTRETINOIN [Suspect]
     Active Substance: ISOTRETINOIN
     Indication: Hidradenitis
  2. ISOTRETINOIN [Suspect]
     Active Substance: ISOTRETINOIN
  3. FUCIDIN [Concomitant]
     Active Substance: FUSIDATE SODIUM
     Indication: Skin infection
     Route: 061
  4. AMOXICILLIN\CLAVULANIC ACID [Concomitant]
     Active Substance: AMOXICILLIN\CLAVULANIC ACID
     Indication: Skin infection
  5. DICLOXACILLIN [Concomitant]
     Active Substance: DICLOXACILLIN
     Indication: Skin infection
     Route: 048

REACTIONS (5)
  - Blepharitis [Unknown]
  - Lip dry [Unknown]
  - Xerosis [Unknown]
  - Cheilitis [Unknown]
  - Product use in unapproved indication [Unknown]
